FAERS Safety Report 5514590-9 (Version None)
Quarter: 2007Q4

REPORT INFORMATION
  Report Type: 
  Country: None (occurrence: None)
  Receive Date: 20071113
  Receipt Date: 20071107
  Transmission Date: 20080405
  Serious: Yes (Other)
  Sender: FDA-Public Use
  Company Number: B0494940A

PATIENT
  Age: 40 Year
  Sex: Female
  Weight: 52.4 kg

DRUGS (4)
  1. LAPATINIB [Suspect]
     Dosage: 1250MG PER DAY
     Route: 048
     Dates: start: 20070817
  2. CAPECITABINE [Suspect]
     Dosage: 1500MG PER DAY
     Route: 048
     Dates: start: 20070817
  3. IBANDRONATE SODIUM [Concomitant]
     Dosage: 6MG SEE DOSAGE TEXT
     Route: 042
     Dates: start: 20060811
  4. ESOMEPRAZOLE MAGNESIUM [Concomitant]
     Dosage: 40MG PER DAY
     Route: 048
     Dates: start: 20060608

REACTIONS (2)
  - DIARRHOEA [None]
  - WEIGHT DECREASED [None]
